FAERS Safety Report 15758224 (Version 1)
Quarter: 2018Q4

REPORT INFORMATION
  Report Type: Spontaneous
  Country: US (occurrence: US)
  Receive Date: 20181225
  Receipt Date: 20181225
  Transmission Date: 20190205
  Serious: No
  Sender: FDA-Public Use
  Company Number: US-BAUSCH-BL-2017-036189

PATIENT
  Age: 67 Year
  Sex: Female

DRUGS (4)
  1. ALAWAY [Suspect]
     Active Substance: KETOTIFEN FUMARATE
     Indication: OCULAR HYPERAEMIA
     Dosage: AS NEEDED
     Route: 047
  2. ADVANCED EYE RELIEF/ REDNESS MAXIMUM RELIEF [Suspect]
     Active Substance: HYPROMELLOSES\NAPHAZOLINE HYDROCHLORIDE
     Indication: OCULAR HYPERAEMIA
     Dosage: AS NEEDED, STARTED 4 MONTHS AGO,?TOTALLY USED ABOUT 8 TIMES
     Dates: start: 2017, end: 201711
  3. VISINE ORIGINAL REDNESS RELIEF [Suspect]
     Active Substance: TETRAHYDROZOLINE HYDROCHLORIDE
     Indication: PRODUCT USED FOR UNKNOWN INDICATION
     Dosage: AS NEEDED
     Route: 047
     Dates: start: 2013
  4. OPCON-A [Suspect]
     Active Substance: NAPHAZOLINE HYDROCHLORIDE\PHENIRAMINE MALEATE
     Indication: OCULAR HYPERAEMIA
     Dosage: AS NEEDED
     Route: 047

REACTIONS (5)
  - Dry skin [Recovered/Resolved]
  - Erythema [Recovered/Resolved]
  - Eye pruritus [Recovered/Resolved]
  - Skin exfoliation [Recovered/Resolved]
  - Eye irritation [Recovered/Resolved]

NARRATIVE: CASE EVENT DATE: 2017
